FAERS Safety Report 10393945 (Version 1)
Quarter: 2014Q3

REPORT INFORMATION
  Report Type: Not Available
  Country: CH (occurrence: CH)
  Receive Date: 20140819
  Receipt Date: 20140819
  Transmission Date: 20150326
  Serious: Yes (Hospitalization)
  Sender: FDA-Public Use
  Company Number: CH-NAPPMUNDI-DEU-2014-0015118

PATIENT
  Sex: Male
  Weight: 68 kg

DRUGS (6)
  1. PREDNISON [Concomitant]
     Active Substance: PREDNISONE
     Dosage: 5 MG, UNK
  2. NOVALGIN [Concomitant]
     Active Substance: METAMIZOLE SODIUM
  3. BACTRIM [Concomitant]
     Active Substance: SULFAMETHOXAZOLE\TRIMETHOPRIM
  4. MOVICOL [Concomitant]
     Active Substance: POLYETHYLENE GLYCOL 3350\POTASSIUM CHLORIDE\SODIUM BICARBONATE\SODIUM CHLORIDE
  5. TARGIN 10/20 TABLETTEN RETARD [Suspect]
     Active Substance: NALOXONE HYDROCHLORIDE\OXYCODONE HYDROCHLORIDE
     Indication: CANCER PAIN
     Dosage: 4 TABLET, PM
     Route: 048
     Dates: start: 20140105, end: 20140105
  6. LYRICA [Concomitant]
     Active Substance: PREGABALIN
     Dosage: 25 MG, UNK

REACTIONS (3)
  - Somnolence [None]
  - Myoclonus [Recovered/Resolved]
  - Agitation [None]

NARRATIVE: CASE EVENT DATE: 20140105
